FAERS Safety Report 11215990 (Version 1)
Quarter: 2015Q2

REPORT INFORMATION
  Report Type: Report from Study
  Country: KR (occurrence: KR)
  Receive Date: 20150624
  Receipt Date: 20150624
  Transmission Date: 20150821
  Serious: Yes (Death, Other)
  Sender: FDA-Public Use
  Company Number: KR-PFIZER INC-2015140988

PATIENT
  Age: 76 Year
  Sex: Male
  Weight: 52 kg

DRUGS (9)
  1. PREPENEM [Concomitant]
     Indication: ENTERITIS
     Dosage: UNK
     Route: 042
     Dates: start: 20110509, end: 20110529
  2. TAZOFERAN [Concomitant]
     Active Substance: PIPERACILLIN SODIUM\TAZOBACTAM SODIUM
     Indication: ENTERITIS
     Dosage: UNK
     Route: 042
     Dates: end: 20110512
  3. TYGACIL [Suspect]
     Active Substance: TIGECYCLINE
     Indication: COLITIS
     Dosage: 100 MG, DAILY
     Route: 042
     Dates: start: 20110518
  4. ALDACTONE [Concomitant]
     Active Substance: SPIRONOLACTONE
     Indication: PROPHYLAXIS
     Dosage: UNK
     Route: 048
     Dates: start: 20110512
  5. DIGOXIN. [Concomitant]
     Active Substance: DIGOXIN
     Indication: CARDIAC FAILURE CONGESTIVE
     Dosage: UNK
     Route: 048
     Dates: start: 20110418
  6. TAZOCIN [Concomitant]
     Active Substance: PIPERACILLIN SODIUM\TAZOBACTAM SODIUM
     Indication: PREOPERATIVE CARE
  7. TAZOCIN [Concomitant]
     Active Substance: PIPERACILLIN SODIUM\TAZOBACTAM SODIUM
     Indication: ENTERITIS
     Dosage: UNK
     Route: 042
     Dates: start: 20110513, end: 20110517
  8. TAZOFERAN [Concomitant]
     Active Substance: PIPERACILLIN SODIUM\TAZOBACTAM SODIUM
     Indication: PREOPERATIVE CARE
  9. TYLENOL [Concomitant]
     Active Substance: ACETAMINOPHEN
     Indication: PROPHYLAXIS
     Dosage: UNK
     Route: 048
     Dates: start: 20110414

REACTIONS (3)
  - Cardiac failure congestive [Fatal]
  - Disease progression [Fatal]
  - Renal impairment [Not Recovered/Not Resolved]

NARRATIVE: CASE EVENT DATE: 20110518
